FAERS Safety Report 9329621 (Version 1)
Quarter: 2013Q2

REPORT INFORMATION
  Report Type: Spontaneous
  Country: US (occurrence: US)
  Receive Date: 20130604
  Receipt Date: 20130604
  Transmission Date: 20140414
  Serious: No
  Sender: FDA-Public Use
  Company Number: US-SANOFI-AVENTIS-2013SA000481

PATIENT
  Sex: Female

DRUGS (6)
  1. LANTUS [Suspect]
     Indication: DIABETES MELLITUS
     Dosage: DOSE:90 UNIT(S)
     Route: 051
  2. LANTUS [Suspect]
     Indication: DIABETES MELLITUS
     Dosage: DOSE:150 UNIT(S)
     Route: 051
  3. HUMALOG [Concomitant]
  4. NPH INSULIN [Concomitant]
  5. INSULIN, REGULAR [Concomitant]
  6. IRON [Concomitant]

REACTIONS (1)
  - Drug resistance [Unknown]
